FAERS Safety Report 7294062-4 (Version None)
Quarter: 2011Q1

REPORT INFORMATION
  Report Type: 
  Country: None (occurrence: None)
  Receive Date: 20110215
  Receipt Date: 20110210
  Transmission Date: 20110831
  Serious: Yes (Hospitalization, Other)
  Sender: FDA-Public Use
  Company Number: HU-ABBOTT-11P-076-0704539-00

PATIENT
  Age: 73 Year
  Sex: Male
  Weight: 79 kg

DRUGS (3)
  1. RENAGEL [Concomitant]
     Indication: HYPERPARATHYROIDISM SECONDARY
     Dosage: 4800MG DAILY
     Route: 048
  2. ZEMPLAR [Suspect]
     Indication: HYPERPARATHYROIDISM SECONDARY
     Dosage: STARTING DOSE/DIALYSIS
     Route: 042
     Dates: start: 20110113
  3. CALCIJEX [Concomitant]
     Indication: HYPERPARATHYROIDISM SECONDARY
     Dosage: 2MCG DAILY
     Route: 042

REACTIONS (4)
  - STAPHYLOCOCCAL BACTERAEMIA [None]
  - ARTERIOVENOUS FISTULA SITE COMPLICATION [None]
  - INFLAMMATION [None]
  - HYPERTENSION [None]
